FAERS Safety Report 6691577-4 (Version None)
Quarter: 2010Q2

REPORT INFORMATION
  Report Type: 
  Country: None (occurrence: None)
  Receive Date: 20100422
  Receipt Date: 20100420
  Transmission Date: 20101027
  Serious: Yes (Other)
  Sender: FDA-Public Use
  Company Number: CHPA2010CA04655

PATIENT
  Sex: Male

DRUGS (6)
  1. HABITROL [Suspect]
     Indication: SMOKING CESSATION THERAPY
     Dosage: 21 MG, UNK
     Route: 062
  2. HABITROL [Suspect]
     Dosage: 7 MG, UNK
  3. HABITROL [Suspect]
     Dosage: 14 MG, UNK
  4. HABITROL [Suspect]
     Dosage: 21 MG, UNK
  5. STOOL SOFTENER [Concomitant]
  6. ANTIDEPRESSANTS [Concomitant]

REACTIONS (17)
  - ANGER [None]
  - APPLICATION SITE DISCOLOURATION [None]
  - APPLICATION SITE ERYTHEMA [None]
  - APPLICATION SITE PRURITUS [None]
  - DEPRESSED MOOD [None]
  - HAEMORRHAGE [None]
  - INSOMNIA [None]
  - INTENTIONAL DRUG MISUSE [None]
  - IRRITABILITY [None]
  - MALAISE [None]
  - MYOSCLEROSIS [None]
  - NAUSEA [None]
  - RASH [None]
  - SKIN INDURATION [None]
  - SKIN REACTION [None]
  - SUICIDAL IDEATION [None]
  - THINKING ABNORMAL [None]
